FAERS Safety Report 8943951 (Version 1)
Quarter: 2012Q4

REPORT INFORMATION
  Report Type: 
  Country: US (occurrence: US)
  Receive Date: 20121204
  Receipt Date: 20121204
  Transmission Date: 20130627
  Serious: No
  Sender: FDA-Public Use
  Company Number: US-ASTRAZENECA-1998AU04151

PATIENT
  Age: 51 Year
  Sex: Female
  Weight: 84.4 kg

DRUGS (12)
  1. SYMBICORT PMDI [Suspect]
     Dosage: UNKNOWN
     Route: 055
  2. PULMICORT TURBUHALER [Suspect]
     Indication: ASTHMA
     Route: 055
     Dates: start: 19980512
  3. ACCOLATE [Concomitant]
     Indication: ASTHMA
     Dosage: DOSE: 20 mg TOTAL DAILY DOSE: 40 mg
     Route: 048
  4. AZMACORT [Concomitant]
     Indication: ASTHMA
     Dosage: DOSE: 2  TOTAL DAILY DOSE: 8
     Route: 055
  5. LASIX [Concomitant]
     Indication: SWELLING
     Route: 048
  6. MEDROL [Concomitant]
     Indication: ASTHMA
     Dosage: DOSE: 12 mg TOTAL DAILY DOSE: 12 mg
     Route: 048
     Dates: end: 19980427
  7. MEDROL [Concomitant]
     Indication: ASTHMA
     Dosage: DOSE: 40 mg TOTAL DAILY DOSE: 40 mg
     Route: 048
     Dates: start: 19980428
  8. MEDROL [Concomitant]
     Indication: ASTHMA
     Dosage: DOSE: 16 mg TOTAL DAILY DOSE: 16 mg
     Route: 048
     Dates: start: 19980518
  9. MEDROL [Concomitant]
     Indication: ASTHMA
     Dosage: DOSE: 20 mg TOTAL DAILY DOSE: 20 mg
     Route: 048
     Dates: start: 19980513, end: 19980517
  10. PROVENTIL [Concomitant]
     Indication: ASTHMA
     Dosage: AS REQUIRED
     Route: 065
  11. SEREVENT [Concomitant]
     Indication: ASTHMA
     Dosage: DOSE: 2  TOTAL DAILY DOSE: 4
     Route: 055
  12. TILADE [Concomitant]
     Indication: ASTHMA
     Dosage: TWO PUFFS FOUR TIMES A DAY
     Route: 055

REACTIONS (2)
  - Asthma [Unknown]
  - Generalised oedema [Not Recovered/Not Resolved]
